FAERS Safety Report 5679010-2 (Version None)
Quarter: 2008Q1

REPORT INFORMATION
  Report Type: 
  Country: None (occurrence: None)
  Receive Date: 20080325
  Receipt Date: 20080318
  Transmission Date: 20080703
  Serious: Yes (Other)
  Sender: FDA-Public Use
  Company Number: B0513478A

PATIENT
  Age: 75 Year
  Sex: Male

DRUGS (1)
  1. AUGMENTINE (ORAL) [Suspect]
     Indication: ORAL INFECTION
     Route: 048
     Dates: start: 20070626, end: 20070626

REACTIONS (2)
  - OEDEMA [None]
  - PRURITUS [None]
